FAERS Safety Report 19537621 (Version 1)
Quarter: 2021Q3

REPORT INFORMATION
  Report Type: Spontaneous
  Country: US (occurrence: US)
  Receive Date: 20210714
  Receipt Date: 20210714
  Transmission Date: 20211014
  Serious: Yes (Hospitalization)
  Sender: FDA-Public Use
  Company Number: None

PATIENT
  Sex: Female
  Weight: 82.6 kg

DRUGS (7)
  1. DAUNORUBICIN [Concomitant]
     Active Substance: DAUNORUBICIN
  2. ELIQUIS [Concomitant]
     Active Substance: APIXABAN
  3. ONCASPAR [Suspect]
     Active Substance: PEGASPARGASE
  4. CYTARABINE. [Concomitant]
     Active Substance: CYTARABINE
  5. DEXAMETHASONE. [Concomitant]
     Active Substance: DEXAMETHASONE
  6. METHOTREXATE. [Concomitant]
     Active Substance: METHOTREXATE
  7. VINCRISTINE SULFATE. [Suspect]
     Active Substance: VINCRISTINE SULFATE

REACTIONS (9)
  - Transfusion [None]
  - Blood triglycerides increased [None]
  - Headache [None]
  - Disseminated intravascular coagulation [None]
  - Cholelithiasis [None]
  - Gastrointestinal wall thickening [None]
  - Neutropenia [None]
  - Blood lactic acid increased [None]
  - Hepatic steatosis [None]

NARRATIVE: CASE EVENT DATE: 20210712
